FAERS Safety Report 6115357-3 (Version None)
Quarter: 2009Q1

REPORT INFORMATION
  Report Type: 
  Country: None (occurrence: None)
  Receive Date: 20090313
  Receipt Date: 20090305
  Transmission Date: 20090719
  Serious: Yes (Other)
  Sender: FDA-Public Use
  Company Number: US-JNJCH-2009006315

PATIENT
  Sex: Male

DRUGS (1)
  1. PURELL ORIGINAL [Suspect]
     Indication: ANTIBIOTIC PROPHYLAXIS
     Dosage: TEXT:TWO SQUIRTS ONCE
     Route: 061

REACTIONS (1)
  - THERMAL BURN [None]
